FAERS Safety Report 6826119-3 (Version None)
Quarter: 2010Q3

REPORT INFORMATION
  Report Type: 
  Country: None (occurrence: None)
  Receive Date: 20100709
  Receipt Date: 20100630
  Transmission Date: 20110219
  Serious: Yes (Death, Hospitalization)
  Sender: FDA-Public Use
  Company Number: IE-ELI_LILLY_AND_COMPANY-IE201002001531

PATIENT
  Sex: Female
  Weight: 48.7 kg

DRUGS (12)
  1. PEMETREXED [Suspect]
     Dosage: 750 MG, EVERY 3 WEEKS
     Route: 042
     Dates: start: 20091103, end: 20100117
  2. CISPLATIN [Suspect]
     Dosage: 113 MG, EVERY 3 WEEKS
     Route: 042
     Dates: start: 20091103, end: 20100117
  3. FOLIC ACID [Concomitant]
     Indication: PROPHYLAXIS
  4. VITAMIN B-12 [Concomitant]
     Indication: PROPHYLAXIS
  5. OXYCODONE HCL [Concomitant]
     Indication: ANALGESIC THERAPY
     Dates: start: 20091019
  6. IBUPROFEN [Concomitant]
     Indication: ANALGESIC THERAPY
     Dates: start: 20091027
  7. ACETAMINOPHEN [Concomitant]
     Indication: ANALGESIC THERAPY
     Dates: start: 20090101
  8. LANSOPRAZOLE [Concomitant]
     Indication: ANTACID THERAPY
     Dates: start: 20090101
  9. SENNA [Concomitant]
     Indication: LAXATIVE SUPPORTIVE CARE
     Dates: start: 20091019
  10. CORSODYL [Concomitant]
     Dates: start: 20091021
  11. NYSTATIN [Concomitant]
  12. CLEXANE [Concomitant]
     Indication: HYPOTENSION
     Dates: start: 20100112

REACTIONS (2)
  - DEATH [None]
  - HYPOCALCAEMIA [None]
